FAERS Safety Report 6574106-5 (Version None)
Quarter: 2010Q1

REPORT INFORMATION
  Report Type: 
  Country: None (occurrence: None)
  Receive Date: 20100201
  Receipt Date: 20100115
  Transmission Date: 20100710
  Serious: Yes (Other)
  Sender: FDA-Public Use
  Company Number: JPI-P-009054

PATIENT
  Age: 49 Year
  Sex: Female

DRUGS (3)
  1. XYREM [Suspect]
     Indication: SLEEP DISORDER
     Dosage: 6 GM (3 GM, 2 IN 1 D), ORAL; 8 GM (4 GM, 2 IN 1 D) , ORAL; 9 GM (4.5 GM, 2 IN 1 D)
     Route: 048
     Dates: start: 20090101, end: 20090101
  2. XYREM [Suspect]
     Indication: SLEEP DISORDER
     Dosage: 6 GM (3 GM, 2 IN 1 D), ORAL; 8 GM (4 GM, 2 IN 1 D) , ORAL; 9 GM (4.5 GM, 2 IN 1 D)
     Route: 048
     Dates: start: 20090101, end: 20091215
  3. XYREM [Suspect]
     Indication: SLEEP DISORDER
     Dosage: 6 GM (3 GM, 2 IN 1 D), ORAL; 8 GM (4 GM, 2 IN 1 D) , ORAL; 9 GM (4.5 GM, 2 IN 1 D)
     Route: 048
     Dates: start: 20081017

REACTIONS (13)
  - ALCOHOLISM [None]
  - AMNESIA [None]
  - DEREALISATION [None]
  - FLAT AFFECT [None]
  - HALLUCINATIONS, MIXED [None]
  - HYPERHIDROSIS [None]
  - IMPAIRED WORK ABILITY [None]
  - MUSCLE TIGHTNESS [None]
  - PARANOIA [None]
  - PRESYNCOPE [None]
  - PSYCHOTIC DISORDER [None]
  - TREMOR [None]
  - VOMITING [None]
